FAERS Safety Report 25047611 (Version 1)
Quarter: 2025Q1

REPORT INFORMATION
  Report Type: Spontaneous
  Country: US (occurrence: US)
  Receive Date: 20250306
  Receipt Date: 20250306
  Transmission Date: 20250409
  Serious: No
  Sender: PFIZER
  Company Number: US-PFIZER INC-PV202500026338

PATIENT

DRUGS (2)
  1. NURTEC ODT [Suspect]
     Active Substance: RIMEGEPANT SULFATE
     Indication: Migraine prophylaxis
  2. TRAMADOL [Concomitant]
     Active Substance: TRAMADOL
     Indication: Back injury
     Dosage: 50 MG, 2X/DAY

REACTIONS (1)
  - Therapeutic product effect decreased [Unknown]
